FAERS Safety Report 5608822-6 (Version None)
Quarter: 2008Q1

REPORT INFORMATION
  Report Type: 
  Country: None (occurrence: None)
  Receive Date: 20080131
  Receipt Date: 20080124
  Transmission Date: 20080703
  Serious: Yes (Other)
  Sender: FDA-Public Use
  Company Number: JP-JNJFOC-20071004467

PATIENT
  Sex: Female
  Weight: 50 kg

DRUGS (28)
  1. REMICADE [Suspect]
     Route: 042
  2. REMICADE [Suspect]
     Route: 042
  3. REMICADE [Suspect]
     Route: 042
  4. REMICADE [Suspect]
     Route: 042
  5. REMICADE [Suspect]
     Route: 042
  6. REMICADE [Suspect]
     Route: 042
  7. REMICADE [Suspect]
     Route: 042
  8. REMICADE [Suspect]
     Route: 042
  9. REMICADE [Suspect]
     Route: 042
  10. REMICADE [Suspect]
     Route: 042
  11. REMICADE [Suspect]
     Route: 042
  12. REMICADE [Suspect]
     Route: 042
  13. REMICADE [Suspect]
     Indication: RHEUMATOID ARTHRITIS
     Route: 042
  14. ADRENAL HORMONE PREPARATIONS [Concomitant]
     Indication: RHEUMATOID ARTHRITIS
  15. METHOTREXATE [Concomitant]
     Route: 048
  16. METHOTREXATE [Concomitant]
     Indication: RHEUMATOID ARTHRITIS
     Route: 048
  17. PREDNISOLONE [Concomitant]
     Route: 048
  18. PREDNISOLONE [Concomitant]
     Route: 048
  19. PREDNISOLONE [Concomitant]
     Route: 048
  20. PREDNISOLONE [Concomitant]
     Route: 048
  21. PREDNISOLONE [Concomitant]
     Indication: RHEUMATOID ARTHRITIS
     Route: 048
  22. LOXONIN [Concomitant]
     Indication: RHEUMATOID ARTHRITIS
     Route: 048
  23. FOLIAMIN [Concomitant]
     Route: 048
  24. GASTER [Concomitant]
     Route: 048
  25. TAKEPRON [Concomitant]
     Route: 048
  26. MUCOSTA [Concomitant]
     Route: 048
  27. RISEDRONATE SODIUM [Concomitant]
     Route: 048
  28. DESMOPRESSIN [Concomitant]

REACTIONS (2)
  - LYMPHOCYTIC HYPOPHYSITIS [None]
  - PUSTULAR PSORIASIS [None]
